FAERS Safety Report 7650326-3 (Version None)
Quarter: 2011Q3

REPORT INFORMATION
  Report Type: 
  Country: None (occurrence: None)
  Receive Date: 20110719
  Receipt Date: 20101216
  Transmission Date: 20111222
  Serious: Yes (Other)
  Sender: FDA-Public Use
  Company Number: 163-50794-10122535

PATIENT

DRUGS (1)
  1. VIDAZA [Suspect]
     Indication: MYELODYSPLASTIC SYNDROME

REACTIONS (5)
  - ANAEMIA [None]
  - PNEUMONIA [None]
  - INFECTION [None]
  - THROMBOCYTOPENIA [None]
  - NEUTROPENIA [None]
